FAERS Safety Report 4888781-4 (Version None)
Quarter: 2005Q4

REPORT INFORMATION
  Report Type: 
  Country: None (occurrence: None)
  Receive Date: 20051215
  Receipt Date: 20050317
  Transmission Date: 20060501
  Serious: Yes (Other)
  Sender: FDA-Public Use
  Company Number: 2005046348

PATIENT
  Age: 76 Year
  Sex: Male

DRUGS (1)
  1. BEXTRA [Suspect]
     Indication: NECK PAIN
     Dates: start: 20030403, end: 20041014

REACTIONS (1)
  - CARDIAC FAILURE CONGESTIVE [None]
